FAERS Safety Report 8522598-4 (Version None)
Quarter: 2012Q3

REPORT INFORMATION
  Report Type: 
  Country: None (occurrence: None)
  Receive Date: 20120719
  Receipt Date: 20120703
  Transmission Date: 20120928
  Serious: Yes (Hospitalization, Other)
  Sender: FDA-Public Use
  Company Number: US-BAXTER-2009BH002193

PATIENT
  Sex: Male

DRUGS (11)
  1. BUPROPION HCL [Concomitant]
     Route: 065
  2. GAMMAGARD LIQUID [Suspect]
     Indication: HYPER IGM SYNDROME
     Route: 042
  3. ESOMEPRAZOLE [Concomitant]
     Route: 065
  4. POTASSIUM CHLORIDE [Concomitant]
     Route: 065
  5. DESVENLAFAXINE SUCCINATE [Concomitant]
     Dosage: 50MG OR TB24
     Route: 065
  6. FUROSEMIDE [Concomitant]
     Route: 065
  7. SPIRONOLACTONE [Concomitant]
     Route: 065
  8. MILK THISTLE [Concomitant]
     Route: 065
  9. LACTULOSE [Concomitant]
  10. PROPRANOLOL HYDROCHLORIDE [Concomitant]
     Route: 065
  11. RIFAXIMIN [Concomitant]
     Route: 065

REACTIONS (7)
  - PYELONEPHRITIS [None]
  - HEPATIC CIRRHOSIS [None]
  - STREPTOCOCCAL BACTERAEMIA [None]
  - RENAL FAILURE ACUTE [None]
  - HEPATITIS C [None]
  - SINUSITIS [None]
  - UPPER RESPIRATORY TRACT INFECTION [None]
